FAERS Safety Report 6304374-6 (Version None)
Quarter: 2009Q3

REPORT INFORMATION
  Report Type: 
  Country: None (occurrence: None)
  Receive Date: 20090811
  Receipt Date: 20090806
  Transmission Date: 20100115
  Serious: No
  Sender: FDA-Public Use
  Company Number: US-B.I. PHARMACEUTICALS,INC./RIDGEFIELD-2009-BP-08193BP

PATIENT
  Age: 71 Year
  Sex: Male

DRUGS (3)
  1. FLOMAX [Suspect]
     Indication: URINE FLOW DECREASED
     Dates: start: 20081101, end: 20090501
  2. PEPCID [Concomitant]
     Indication: DYSPEPSIA
  3. AVODART [Concomitant]

REACTIONS (1)
  - DRUG INEFFECTIVE [None]
